FAERS Safety Report 11468065 (Version 7)
Quarter: 2019Q2

REPORT INFORMATION
  Report Type: Spontaneous
  Country: US (occurrence: US)
  Receive Date: 20150908
  Receipt Date: 20190503
  Transmission Date: 20190711
  Serious: No
  Sender: FDA-Public Use
  Company Number: US-PFIZER INC-2015293433

PATIENT
  Age: 6 Year
  Sex: Female
  Weight: 21 kg

DRUGS (3)
  1. GENOTROPIN [Suspect]
     Active Substance: SOMATROPIN
     Dosage: 1.5 MG, 1X/DAY
  2. GENOTROPIN [Suspect]
     Active Substance: SOMATROPIN
     Indication: TURNER^S SYNDROME
     Dosage: 1 MG, DAILY (AT BEDTIME)
     Route: 058
     Dates: start: 201505
  3. GENOTROPIN [Suspect]
     Active Substance: SOMATROPIN
     Indication: GONADAL DYSGENESIS
     Dosage: 1.2 MG, DAILY (AT NIGHT)
     Route: 058

REACTIONS (5)
  - Fatigue [Unknown]
  - Influenza [Unknown]
  - Arthralgia [Recovered/Resolved]
  - Headache [Unknown]
  - Dyspnoea [Unknown]

NARRATIVE: CASE EVENT DATE: 201507
